FAERS Safety Report 24847585 (Version 4)
Quarter: 2025Q1

REPORT INFORMATION
  Report Type: Report from Study
  Country: US (occurrence: US)
  Receive Date: 20250116
  Receipt Date: 20250221
  Transmission Date: 20250408
  Serious: Yes (Other)
  Sender: ABBVIE
  Company Number: US-ABBVIE-6088720

PATIENT
  Age: 62 Year
  Sex: Female
  Weight: 85.275 kg

DRUGS (5)
  1. CREON [Suspect]
     Active Substance: PANCRELIPASE AMYLASE\PANCRELIPASE LIPASE\PANCRELIPASE PROTEASE
     Indication: Pancreatic failure
     Dosage: 4 CAPS EACH MEAL AND 2 CAPS EACH SNACK?FORM STRENGTH: 36000 UNIT
     Route: 048
     Dates: start: 2022
  2. SAPHRIS [Concomitant]
     Active Substance: ASENAPINE MALEATE
     Indication: Mood swings
  3. WELLBUTRIN [Concomitant]
     Active Substance: BUPROPION HYDROCHLORIDE
     Indication: Bipolar disorder
  4. MODAFINIL [Concomitant]
     Active Substance: MODAFINIL
     Indication: Pain
  5. LEVOTHYROXINE [Concomitant]
     Active Substance: LEVOTHYROXINE
     Indication: Hypothyroidism

REACTIONS (2)
  - Tarsal tunnel syndrome [Not Recovered/Not Resolved]
  - Inflammation [Not Recovered/Not Resolved]

NARRATIVE: CASE EVENT DATE: 20230201
